FAERS Safety Report 15980145 (Version 1)
Quarter: 2019Q1

REPORT INFORMATION
  Report Type: Spontaneous
  Country: US (occurrence: US)
  Receive Date: 20190124
  Receipt Date: 20190124
  Transmission Date: 20190418
  Serious: No
  Sender: FDA-Public Use
  Company Number: None

PATIENT
  Age: 63 Year
  Sex: Female

DRUGS (1)
  1. HUMIRA [Suspect]
     Active Substance: ADALIMUMAB
     Indication: KERATITIS INTERSTITIAL
     Route: 058
     Dates: start: 20160419

REACTIONS (1)
  - Mycobacterium tuberculosis complex test positive [None]

NARRATIVE: CASE EVENT DATE: 20190122
